FAERS Safety Report 6771427-8 (Version None)
Quarter: 2010Q2

REPORT INFORMATION
  Report Type: 
  Country: None (occurrence: None)
  Receive Date: 20100616
  Receipt Date: 20100609
  Transmission Date: 20101027
  Serious: Yes (Hospitalization)
  Sender: FDA-Public Use
  Company Number: JP-SANOFI-AVENTIS-2010SA033510

PATIENT
  Age: 87 Year
  Sex: Female

DRUGS (1)
  1. AMARYL [Suspect]
     Indication: TYPE 2 DIABETES MELLITUS

REACTIONS (2)
  - HYPOGLYCAEMIC COMA [None]
  - STRESS CARDIOMYOPATHY [None]
